FAERS Safety Report 5460868-7 (Version None)
Quarter: 2007Q3

REPORT INFORMATION
  Report Type: 
  Country: None (occurrence: None)
  Receive Date: 20070918
  Receipt Date: 20070817
  Transmission Date: 20080115
  Serious: Yes (Other)
  Sender: FDA-Public Use
  Company Number: 6037526

PATIENT
  Age: 90 Year
  Sex: Female

DRUGS (6)
  1. TERBINAFINE HCL [Suspect]
     Indication: ONYCHOMYCOSIS
     Dosage: (250 MG) ORAL
     Route: 048
     Dates: start: 20070131, end: 20070208
  2. QUETIAPINE FUMARATE [Suspect]
     Indication: AGITATION
     Dosage: (50 MG) ORAL
     Route: 048
     Dates: start: 20060926
  3. AMIAS (CANDESARTAN CILEXETIL) [Concomitant]
  4. CITALOPRAM HYDROBROMIDE [Concomitant]
  5. FUROSEMIDE [Concomitant]
  6. MOVICOL (SODIUM BICARBONATE, POTASSIUM CHLORIDE, SODIUM CHLORIDE, MACR [Concomitant]

REACTIONS (2)
  - AGITATION [None]
  - DRUG INTERACTION [None]
